FAERS Safety Report 10270925 (Version 1)
Quarter: 2014Q2

REPORT INFORMATION
  Report Type: Spontaneous
  Country: US (occurrence: None)
  Receive Date: 20140626
  Receipt Date: 20140626
  Transmission Date: 20141212
  Serious: Yes (Hospitalization)
  Sender: FDA-Public Use
  Company Number: None

PATIENT
  Age: 72 Year
  Sex: Male
  Weight: 96.16 kg

DRUGS (1)
  1. AMOXICILLIN [Suspect]
     Dosage: 1
     Route: 048

REACTIONS (2)
  - Mental status changes [None]
  - Hepatic enzyme increased [None]
